FAERS Safety Report 4523176-4 (Version None)
Quarter: 2004Q4

REPORT INFORMATION
  Report Type: 
  Country: None (occurrence: None)
  Receive Date: 20041208
  Receipt Date: 20041122
  Transmission Date: 20050328
  Serious: Yes (Hospitalization)
  Sender: FDA-Public Use
  Company Number: DSA_25455_2004

PATIENT

DRUGS (1)
  1. VASOCARDOL [Suspect]
     Dosage: 180 MG Q DAY

REACTIONS (2)
  - HYPERTENSION [None]
  - MEDICATION ERROR [None]
